FAERS Safety Report 15888567 (Version 1)
Quarter: 2019Q1

REPORT INFORMATION
  Report Type: Spontaneous
  Country: US (occurrence: US)
  Receive Date: 20190109
  Receipt Date: 20190109
  Transmission Date: 20190417
  Serious: No
  Sender: FDA-Public Use
  Company Number: None

PATIENT
  Sex: Male

DRUGS (1)
  1. NINLARO [Suspect]
     Active Substance: IXAZOMIB CITRATE
     Indication: PLASMA CELL MYELOMA
     Route: 048
     Dates: start: 20181213, end: 20181231

REACTIONS (6)
  - Fatigue [None]
  - Cough [None]
  - Lip swelling [None]
  - Wheezing [None]
  - Muscular weakness [None]
  - Balance disorder [None]
